FAERS Safety Report 15612328 (Version 2)
Quarter: 2018Q4

REPORT INFORMATION
  Report Type: Spontaneous
  Country: CZ (occurrence: CZ)
  Receive Date: 20181113
  Receipt Date: 20181121
  Transmission Date: 20190205
  Serious: Yes (Death, Other)
  Sender: FDA-Public Use
  Company Number: CZ-ASTELLAS-2018US048815

PATIENT
  Age: 7 Decade
  Sex: Male

DRUGS (5)
  1. DEXAMETHASONE. [Concomitant]
     Active Substance: DEXAMETHASONE
     Indication: CHRONIC GRAFT VERSUS HOST DISEASE IN LIVER
     Dosage: UNK UNK, UNKNOWN FREQ.
     Route: 065
     Dates: start: 201302
  2. SIROLIMUS. [Concomitant]
     Active Substance: SIROLIMUS
     Indication: CHRONIC GRAFT VERSUS HOST DISEASE IN LIVER
     Dosage: UNK UNK, UNKNOWN FREQ.
     Route: 065
     Dates: start: 201302
  3. PREDNISONE. [Concomitant]
     Active Substance: PREDNISONE
     Indication: CHRONIC GRAFT VERSUS HOST DISEASE IN LIVER
     Dosage: UNK UNK, UNKNOWN FREQ.
     Route: 065
     Dates: start: 201302
  4. METHOTREXATE. [Concomitant]
     Active Substance: METHOTREXATE
     Indication: CHRONIC GRAFT VERSUS HOST DISEASE IN LIVER
     Dosage: UNK, UNKNOWN FREQ.
     Route: 065
     Dates: start: 201302
  5. TACROLIMUS. [Suspect]
     Active Substance: TACROLIMUS
     Indication: CHRONIC GRAFT VERSUS HOST DISEASE IN LIVER
     Dosage: UNK UNK, UNKNOWN FREQ.
     Route: 065
     Dates: start: 201302

REACTIONS (12)
  - Multiple organ dysfunction syndrome [Fatal]
  - Haemorrhagic pneumonia [Fatal]
  - Hepatic fibrosis [Unknown]
  - Enterococcal sepsis [Unknown]
  - Pneumonia fungal [Fatal]
  - Cytomegalovirus hepatitis [Unknown]
  - Drug ineffective for unapproved indication [Unknown]
  - Cholestasis [Unknown]
  - Cytomegalovirus infection [Unknown]
  - Thoracic haemorrhage [Fatal]
  - Chronic hepatitis [Unknown]
  - Bronchopulmonary aspergillosis [Fatal]

NARRATIVE: CASE EVENT DATE: 2013
